FAERS Safety Report 6285427-8 (Version None)
Quarter: 2009Q3

REPORT INFORMATION
  Report Type: 
  Country: None (occurrence: None)
  Receive Date: 20090727
  Receipt Date: 20090717
  Transmission Date: 20100115
  Serious: Yes (Other)
  Sender: FDA-Public Use
  Company Number: US-ABBOTT-09P-163-0586214-00

PATIENT
  Weight: 71.278 kg

DRUGS (3)
  1. HUMIRA [Suspect]
     Indication: PSORIATIC ARTHROPATHY
     Route: 058
     Dates: start: 20070101
  2. METFORMIN [Suspect]
     Indication: BLOOD GLUCOSE DECREASED
     Dosage: UNKNOWN
     Dates: start: 20080526, end: 20080726
  3. ACTOS [Suspect]
     Indication: BLOOD GLUCOSE DECREASED
     Dosage: UNKNOWN
     Dates: start: 20090301, end: 20090401

REACTIONS (10)
  - ARTHRALGIA [None]
  - ASTHENIA [None]
  - BLOOD GLUCOSE DECREASED [None]
  - DIZZINESS [None]
  - FATIGUE [None]
  - HAEMATOCHEZIA [None]
  - HYPOAESTHESIA [None]
  - INAPPROPRIATE SCHEDULE OF DRUG ADMINISTRATION [None]
  - MUSCULAR WEAKNESS [None]
  - SPEECH DISORDER [None]
